FAERS Safety Report 7558549-9 (Version None)
Quarter: 2011Q2

REPORT INFORMATION
  Report Type: 
  Country: None (occurrence: None)
  Receive Date: 20110621
  Receipt Date: 20110610
  Transmission Date: 20111010
  Serious: Yes (Other)
  Sender: FDA-Public Use
  Company Number: FR-AMGEN-FRASP2011006807

PATIENT
  Age: 46 Year
  Sex: Female
  Weight: 79 kg

DRUGS (5)
  1. BISOPROLOL FUMARATE [Concomitant]
  2. LEVOTHYROXINE SODIUM [Concomitant]
  3. DOMPERIDONE [Concomitant]
  4. OMEPRAZOLE [Concomitant]
  5. ENBREL [Suspect]
     Indication: PRODUCT USED FOR UNKNOWN INDICATION
     Dosage: 50 MG, WEEKLY
     Dates: start: 20100330

REACTIONS (1)
  - HYPERTENSION [None]
